FAERS Safety Report 12933024 (Version 1)
Quarter: 2016Q4

REPORT INFORMATION
  Report Type: Spontaneous
  Country: AU (occurrence: AU)
  Receive Date: 20161111
  Receipt Date: 20161111
  Transmission Date: 20170207
  Serious: Yes (Other)
  Sender: FDA-Public Use
  Company Number: AU-PFIZER INC-2016508012

PATIENT
  Age: 47 Year
  Sex: Female

DRUGS (2)
  1. NACL [Concomitant]
     Active Substance: SODIUM CHLORIDE
  2. ANZATAX [Suspect]
     Active Substance: PACLITAXEL
     Indication: BREAST CANCER
     Dosage: 100 MG, WEEKLY
     Route: 042
     Dates: start: 20161025, end: 20161025

REACTIONS (6)
  - Pruritus [Recovered/Resolved]
  - Pharyngeal oedema [Recovered/Resolved]
  - Abdominal pain [Recovered/Resolved]
  - Flushing [Unknown]
  - Pain [Unknown]
  - Dizziness [Unknown]

NARRATIVE: CASE EVENT DATE: 20161025
